FAERS Safety Report 13611037 (Version 1)
Quarter: 2017Q2

REPORT INFORMATION
  Report Type: Spontaneous
  Country: US (occurrence: US)
  Receive Date: 20170603
  Receipt Date: 20170603
  Transmission Date: 20170830
  Serious: Yes (Hospitalization)
  Sender: FDA-Public Use
  Company Number: None

PATIENT
  Age: 35 Year
  Sex: Female
  Weight: 89.55 kg

DRUGS (16)
  1. DIENOGEST [Concomitant]
     Active Substance: DIENOGEST
  2. MAGNESIUM GLUCONATE [Concomitant]
     Active Substance: MAGNESIUM GLUCONATE
  3. TOLTEERODINE [Concomitant]
  4. GINGER. [Concomitant]
     Active Substance: GINGER
  5. GLYCERIN. [Concomitant]
     Active Substance: GLYCERIN
  6. METFORMIN [Concomitant]
     Active Substance: METFORMIN HYDROCHLORIDE
  7. HYDROCORTISONE. [Concomitant]
     Active Substance: HYDROCORTISONE
  8. DIPROSALIC [Concomitant]
     Active Substance: BETAMETHASONE DIPROPIONATE
  9. ATROPINE. [Concomitant]
     Active Substance: ATROPINE
  10. NADOLOL. [Concomitant]
     Active Substance: NADOLOL
  11. PROBIOTIC [Concomitant]
     Active Substance: PROBIOTICS NOS
  12. POLYTHEYLEN GLYCOL [Concomitant]
  13. CLOZPINE [Suspect]
     Active Substance: CLOZAPINE
     Route: 048
  14. ZOPICLONE [Concomitant]
     Active Substance: ZOPICLONE
  15. OMEGA3 [Concomitant]
  16. MULTIVITAMIN [Concomitant]
     Active Substance: VITAMINS

REACTIONS (2)
  - Psoriasis [None]
  - Eczema [None]

NARRATIVE: CASE EVENT DATE: 20170601
